FAERS Safety Report 4782391-5 (Version None)
Quarter: 2005Q3

REPORT INFORMATION
  Report Type: 
  Country: None (occurrence: None)
  Receive Date: 20050914
  Receipt Date: 20050706
  Transmission Date: 20060218
  Serious: Yes (Other)
  Sender: FDA-Public Use
  Company Number: 163-20785-05070127

PATIENT

DRUGS (6)
  1. THALOMID [Suspect]
     Indication: MULTIPLE MYELOMA
     Dosage: 200-400MG DAILY STARTING ON DAY 4, ORAL
     Route: 048
     Dates: start: 20021122
  2. GENASENSE [Suspect]
     Indication: MULTIPLE MYELOMA
     Dosage: 5MG/KG/DAY, ON DAYS 1-7, 22-28 AND 43-49, CIV, INTRAVENOUS DRIP; 5 MG/KG/DAY, ON DAYS 1-7, EVERY 5 W
     Route: 041
     Dates: start: 20021119
  3. GENASENSE [Suspect]
     Indication: MULTIPLE MYELOMA
     Dosage: 5MG/KG/DAY, ON DAYS 1-7, 22-28 AND 43-49, CIV, INTRAVENOUS DRIP; 5 MG/KG/DAY, ON DAYS 1-7, EVERY 5 W
     Route: 041
     Dates: start: 20030211
  4. GENASENSE [Suspect]
     Indication: MULTIPLE MYELOMA
     Dosage: 5MG/KG/DAY, ON DAYS 1-7, 22-28 AND 43-49, CIV, INTRAVENOUS DRIP; 5 MG/KG/DAY, ON DAYS 1-7, EVERY 5 W
     Route: 041
     Dates: start: 20030422
  5. DEXAMETHASONE [Suspect]
     Indication: MULTIPLE MYELOMA
     Dosage: 40 MG, ON DAYS 4-7, 25-28 AND 46-49, ORAL; 20 MG, ON DAYS 4-7, EVERY 5 WEEKS, ORAL
     Route: 048
     Dates: start: 20021122
  6. DEXAMETHASONE [Suspect]
     Indication: MULTIPLE MYELOMA
     Dosage: 40 MG, ON DAYS 4-7, 25-28 AND 46-49, ORAL; 20 MG, ON DAYS 4-7, EVERY 5 WEEKS, ORAL
     Route: 048
     Dates: start: 20030211

REACTIONS (2)
  - HYPOCALCAEMIA [None]
  - PLATELET COUNT DECREASED [None]
